FAERS Safety Report 10970798 (Version 1)
Quarter: 2015Q1

REPORT INFORMATION
  Report Type: Spontaneous
  Country: FR (occurrence: FR)
  Receive Date: 20150331
  Receipt Date: 20150331
  Transmission Date: 20150721
  Serious: Yes (Hospitalization)
  Sender: FDA-Public Use
  Company Number: FR-009507513-1503FRA013795

PATIENT
  Age: 58 Year
  Sex: Male
  Weight: 72 kg

DRUGS (8)
  1. EMEND [Suspect]
     Active Substance: APREPITANT
     Dosage: 125 MG, DAY 2
     Route: 048
     Dates: start: 20150221, end: 20150221
  2. VELBE [Suspect]
     Active Substance: VINBLASTINE SULFATE
     Dosage: 3 MG/M2, I.E. 5 MG DAY 2 AND DAY 15
     Route: 042
     Dates: start: 20150221, end: 20150306
  3. ONDANSETRON [Suspect]
     Active Substance: ONDANSETRON
     Dosage: 8 MG, DAY 2, DAY 15
     Route: 042
     Dates: start: 20150221, end: 20150306
  4. SOLUPRED [Suspect]
     Active Substance: PREDNISOLONE
     Dosage: 60 MG, DAY3, DAY 4
     Route: 048
     Dates: start: 20150222, end: 20150223
  5. CARBOPLATIN. [Suspect]
     Active Substance: CARBOPLATIN
     Dosage: 200 MG/M2, I.E 350 MG DAY 2
     Route: 042
     Dates: start: 20150221, end: 20150221
  6. EMEND [Suspect]
     Active Substance: APREPITANT
     Dosage: 80 MG, DAY 3, DAY 4
     Route: 048
     Dates: start: 20150222, end: 20150223
  7. METHOTREXATE [Suspect]
     Active Substance: METHOTREXATE
     Dosage: 30 MG/M2, I.E 50 MG DAY 1 AND DAY 15
     Route: 042
     Dates: start: 20150220, end: 20150306
  8. METHYLPREDNISOLONE. [Suspect]
     Active Substance: METHYLPREDNISOLONE
     Dosage: 80 MG, DAY 1, DAY 2, DAY 15
     Route: 042
     Dates: start: 20150220, end: 20150306

REACTIONS (7)
  - Stomatitis [Not Recovered/Not Resolved]
  - Thrombocytopenia [Not Recovered/Not Resolved]
  - Oedema peripheral [Recovered/Resolved with Sequelae]
  - Generalised erythema [Not Recovered/Not Resolved]
  - Anaemia [Not Recovered/Not Resolved]
  - Dyspnoea [Not Recovered/Not Resolved]
  - Neutropenia [Not Recovered/Not Resolved]

NARRATIVE: CASE EVENT DATE: 20150227
